FAERS Safety Report 5392801-0 (Version None)
Quarter: 2007Q3

REPORT INFORMATION
  Report Type: 
  Country: None (occurrence: None)
  Receive Date: 20070720
  Receipt Date: 20070711
  Transmission Date: 20080115
  Serious: Yes (Other)
  Sender: FDA-Public Use
  Company Number: JP-PFIZER INC-2007052620

PATIENT
  Sex: Male
  Weight: 58.7 kg

DRUGS (4)
  1. NORVASC [Suspect]
     Indication: HYPERTENSION
     Route: 048
     Dates: start: 20060623, end: 20070625
  2. CANDESARTAN CILEXETIL [Suspect]
     Indication: HYPERTENSION
     Route: 048
     Dates: start: 20070124, end: 20070624
  3. ZESTRIL [Concomitant]
     Route: 048
  4. LONGES [Concomitant]
     Route: 048
     Dates: start: 20070522, end: 20070622

REACTIONS (1)
  - VISUAL FIELD DEFECT [None]
